FAERS Safety Report 8580901-3 (Version None)
Quarter: 2012Q3

REPORT INFORMATION
  Report Type: 
  Country: None (occurrence: None)
  Receive Date: 20120809
  Receipt Date: 20120801
  Transmission Date: 20120928
  Serious: Yes (Other)
  Sender: FDA-Public Use
  Company Number: JP-VERTEX PHARMACEUTICALS INC.-AE-2012-010403

PATIENT
  Age: 47 Year
  Sex: Male

DRUGS (8)
  1. TELAVIC (TELAPREVIR) [Suspect]
     Indication: HEPATITIS C
     Route: 048
     Dates: start: 20120130, end: 20120425
  2. PEGINTERFERON ALFA-2B [Concomitant]
     Indication: HEPATITIS C
     Route: 058
     Dates: start: 20120130
  3. MUCOSTA [Concomitant]
     Route: 048
     Dates: start: 20120207
  4. RIBAVIRIN [Concomitant]
     Route: 048
     Dates: start: 20120328, end: 20120718
  5. FAMOTIDINE [Concomitant]
     Route: 048
     Dates: start: 20120207
  6. RIBAVIRIN [Concomitant]
     Indication: HEPATITIS C
     Route: 048
     Dates: start: 20120130, end: 20120327
  7. PEGINTERFERON ALFA-2B [Concomitant]
     Dates: end: 20120718
  8. MARZULENE-S [Concomitant]
     Route: 048
     Dates: start: 20120207

REACTIONS (1)
  - WHITE BLOOD CELL COUNT DECREASED [None]
